FAERS Safety Report 4789377-5 (Version None)
Quarter: 2005Q3

REPORT INFORMATION
  Report Type: 
  Country: None (occurrence: None)
  Receive Date: 20050929
  Receipt Date: 20050812
  Transmission Date: 20060218
  Serious: No
  Sender: FDA-Public Use
  Company Number: 05P-163-0289679-00

PATIENT
  Age: 82 Year
  Sex: Female
  Weight: 65.7716 kg

DRUGS (8)
  1. HUMIRA [Suspect]
     Indication: RHEUMATOID ARTHRITIS
     Dosage: 40 MG, 1 IN 2 WK, SUBCUTANEOUS
     Route: 058
     Dates: start: 20040101, end: 20050725
  2. LEVOTHYROXINE SODIUM [Concomitant]
  3. RALOXIFENE HYDROCHLORIDE [Concomitant]
  4. ESOMEPRAZOLE [Concomitant]
  5. MONTELUKAST SODIUM [Concomitant]
  6. FOLIC ACID [Concomitant]
  7. METHOTREXATE [Concomitant]
  8. FLUTICASONE PROPIONATE [Concomitant]

REACTIONS (3)
  - ARTHRITIS [None]
  - BRONCHITIS [None]
  - SINUSITIS [None]
